FAERS Safety Report 7602203-1 (Version None)
Quarter: 2011Q3

REPORT INFORMATION
  Report Type: 
  Country: None (occurrence: None)
  Receive Date: 20110711
  Receipt Date: 20110630
  Transmission Date: 20111222
  Serious: Yes (Hospitalization)
  Sender: FDA-Public Use
  Company Number: US-ASTRAZENECA-2011SE04734

PATIENT
  Age: 38 Year
  Sex: Female

DRUGS (2)
  1. NEXIUM [Suspect]
     Route: 048
  2. PRILOSEC [Suspect]
     Route: 048

REACTIONS (7)
  - DRUG DOSE OMISSION [None]
  - HOSPITALISATION [None]
  - DRUG INEFFECTIVE [None]
  - OESOPHAGEAL SPASM [None]
  - OESOPHAGEAL PAIN [None]
  - DYSPEPSIA [None]
  - VOMITING [None]
